FAERS Safety Report 9717629 (Version 1)
Quarter: 2013Q4

REPORT INFORMATION
  Report Type: Spontaneous
  Country: US (occurrence: None)
  Receive Date: 20131127
  Receipt Date: 20131127
  Transmission Date: 20140711
  Serious: No
  Sender: FDA-Public Use
  Company Number: None

PATIENT
  Sex: 0

DRUGS (1)
  1. HYDROCORTISONE [Suspect]
     Dates: start: 20131123, end: 20131125

REACTIONS (11)
  - Product compounding quality issue [None]
  - Product contamination [None]
  - Product colour issue [None]
  - Irritability [None]
  - Dizziness [None]
  - Heart rate increased [None]
  - Dysgeusia [None]
  - Nausea [None]
  - Dizziness [None]
  - Thirst [None]
  - Heart rate irregular [None]
